FAERS Safety Report 8185456 (Version 4)
Quarter: 2012Q4

REPORT INFORMATION
  Report Type: 
  Country: US (occurrence: US)
  Receive Date: 20111018
  Receipt Date: 20121227
  Transmission Date: 20130627
  Serious: Yes (Hospitalization, Other)
  Sender: FDA-Public Use
  Company Number: US-ASTRAZENECA-2011SE07960

PATIENT
  Age: 81 Year
  Sex: Female
  Weight: 90.7 kg

DRUGS (21)
  1. SYMBICORT [Suspect]
     Indication: ASTHMA
     Dosage: 80/4.5 MCG 2 PUFFS TWO TIMES A DAY
     Route: 055
     Dates: start: 201012
  2. SYMBICORT [Suspect]
     Indication: EMPHYSEMA
     Dosage: 80/4.5 MCG 2 PUFFS TWO TIMES A DAY
     Route: 055
     Dates: start: 201012
  3. NEXIUM [Suspect]
     Indication: GASTROOESOPHAGEAL REFLUX DISEASE
     Route: 048
  4. NEXIUM [Suspect]
     Indication: GASTROOESOPHAGEAL REFLUX DISEASE
     Dosage: DAILY
     Route: 048
     Dates: start: 2009
  5. LISINOPRIL [Suspect]
     Indication: HYPERTENSION
     Route: 048
  6. EXFORGE [Concomitant]
     Indication: HYPERTENSION
     Dosage: 5/320, DAILY
     Route: 048
  7. LASIX [Concomitant]
     Indication: POLYURIA
     Route: 048
  8. LASIX [Concomitant]
     Indication: OEDEMA PERIPHERAL
     Route: 048
  9. ZORCOR [Concomitant]
     Indication: BLOOD CHOLESTEROL ABNORMAL
     Route: 048
  10. ASA [Concomitant]
     Indication: CARDIAC DISORDER
     Route: 048
  11. ASA [Concomitant]
     Indication: ANTIPLATELET THERAPY
     Route: 048
  12. ASA [Concomitant]
     Indication: CARDIAC DISORDER
     Dosage: ASPIRIN LOW, 81 MG EC, 1 TABLET DAILY
  13. ASA [Concomitant]
     Indication: ANTIPLATELET THERAPY
     Dosage: ASPIRIN LOW, 81 MG EC, 1 TABLET DAILY
  14. XOPENEX [Concomitant]
     Indication: RESPIRATORY DISORDER
     Dosage: AS REQUIRED
     Route: 055
  15. PLAVIX [Concomitant]
     Indication: ANTIPLATELET THERAPY
     Route: 048
  16. XANAX [Concomitant]
     Indication: PANIC ATTACK
     Route: 048
  17. XANAX [Concomitant]
     Indication: PANIC ATTACK
  18. TOMAZEPAM [Concomitant]
     Indication: SLEEP DISORDER
     Dosage: AS REQUIRED
     Route: 048
  19. VITAMIN D3 [Concomitant]
     Route: 048
  20. VITAMIN D3 [Concomitant]
     Route: 048
  21. AMLODIPINE [Concomitant]
     Indication: HYPERTENSION
     Route: 048

REACTIONS (31)
  - Cataract [Unknown]
  - Cerebrovascular accident [Unknown]
  - Headache [Unknown]
  - Dysgeusia [Not Recovered/Not Resolved]
  - Nervousness [Unknown]
  - Psychomotor hyperactivity [Not Recovered/Not Resolved]
  - Mood altered [Unknown]
  - Anxiety [Unknown]
  - Somnolence [Unknown]
  - Fall [Unknown]
  - Laceration [Unknown]
  - Contusion [Unknown]
  - Head injury [Unknown]
  - Wheezing [Unknown]
  - Neuropathy peripheral [Unknown]
  - Gastrooesophageal reflux disease [Unknown]
  - Diverticulitis [Unknown]
  - Haemorrhoids [Unknown]
  - Respiratory disorder [Unknown]
  - Panic attack [Unknown]
  - Laceration [Unknown]
  - Disturbance in attention [Unknown]
  - Emphysema [Unknown]
  - Asthma [Unknown]
  - Diverticulum [Unknown]
  - Gastrooesophageal reflux disease [Unknown]
  - Chronic obstructive pulmonary disease [Unknown]
  - Cough [Unknown]
  - Dyspnoea [Unknown]
  - Off label use [Unknown]
  - Drug ineffective [Unknown]
